FAERS Safety Report 13298110 (Version 1)
Quarter: 2017Q1

REPORT INFORMATION
  Report Type: Spontaneous
  Country: ES (occurrence: ES)
  Receive Date: 20170306
  Receipt Date: 20170306
  Transmission Date: 20170428
  Serious: Yes (Death, Congenital Anomaly)
  Sender: FDA-Public Use
  Company Number: ES-FRESENIUS KABI-FK201701824

PATIENT
  Age: 13 Week

DRUGS (3)
  1. PYRAZINAMIDE. [Suspect]
     Active Substance: PYRAZINAMIDE
     Indication: TUBERCULOSIS
     Route: 064
  2. RIFAMPIN (MANUFACTURER UNKNOWN) [Suspect]
     Active Substance: RIFAMPIN
     Indication: TUBERCULOSIS
     Route: 064
  3. ISONIAZID (MANUFACTURER UNKNOWN) [Suspect]
     Active Substance: ISONIAZID
     Indication: TUBERCULOSIS
     Route: 064

REACTIONS (2)
  - Congenital absence of cranial vault [Fatal]
  - Maternal drugs affecting foetus [Fatal]
